FAERS Safety Report 6254708-6 (Version None)
Quarter: 2009Q3

REPORT INFORMATION
  Report Type: 
  Country: None (occurrence: None)
  Receive Date: 20090702
  Receipt Date: 20090623
  Transmission Date: 20100115
  Serious: Yes (Hospitalization)
  Sender: FDA-Public Use
  Company Number: US-JNJFOC-20090608652

PATIENT
  Sex: Female
  Weight: 51.1 kg

DRUGS (2)
  1. INFLIXIMAB [Suspect]
     Indication: INFLAMMATORY BOWEL DISEASE
     Route: 042
  2. PREDNISONE TAB [Suspect]
     Indication: INFLAMMATORY BOWEL DISEASE

REACTIONS (1)
  - HERPES SIMPLEX [None]
